FAERS Safety Report 9025483 (Version 1)
Quarter: 2013Q1

REPORT INFORMATION
  Report Type: Spontaneous
  Country: AE (occurrence: AE)
  Receive Date: 20130122
  Receipt Date: 20130122
  Transmission Date: 20140127
  Serious: Yes (Death)
  Sender: FDA-Public Use
  Company Number: AE-ROCHE-1182087

PATIENT
  Sex: Female
  Weight: 58 kg

DRUGS (4)
  1. LUCENTIS [Suspect]
     Indication: DIABETIC RETINAL OEDEMA
     Dosage: START DATE-DEC 2012
     Route: 050
  2. AMARYL [Concomitant]
  3. APROVEL [Concomitant]
  4. LANTUS [Concomitant]

REACTIONS (1)
  - Myocardial infarction [Fatal]
